FAERS Safety Report 21710923 (Version 3)
Quarter: 2023Q1

REPORT INFORMATION
  Report Type: Spontaneous
  Country: US (occurrence: US)
  Receive Date: 20221212
  Receipt Date: 20230124
  Transmission Date: 20230417
  Serious: No
  Sender: FDA-Public Use
  Company Number: US-BRISTOL-MYERS SQUIBB COMPANY-2022-150269

PATIENT
  Age: 70 Year
  Sex: Female
  Weight: 73.03 kg

DRUGS (2)
  1. REVLIMID [Suspect]
     Active Substance: LENALIDOMIDE
     Indication: Plasma cell myeloma
     Dosage: DAILY 14 DAYS,EVERY 21 DAYS
     Route: 048
     Dates: start: 20221031
  2. REVLIMID [Suspect]
     Active Substance: LENALIDOMIDE
     Dosage: D1-14 Q21 DAYS
     Route: 048
     Dates: start: 20221030

REACTIONS (7)
  - Dehydration [Not Recovered/Not Resolved]
  - Dry mouth [Not Recovered/Not Resolved]
  - Muscle spasms [Not Recovered/Not Resolved]
  - Off label use [Unknown]
  - Sleep disorder [Unknown]
  - Constipation [Unknown]
  - Insomnia [Unknown]
